FAERS Safety Report 5363522-5 (Version None)
Quarter: 2007Q2

REPORT INFORMATION
  Report Type: 
  Country: None (occurrence: None)
  Receive Date: 20070620
  Receipt Date: 20061115
  Transmission Date: 20071010
  Serious: Yes (Death)
  Sender: FDA-Public Use
  Company Number: US-BRISTOL-MYERS SQUIBB COMPANY-13579156

PATIENT
  Age: 90 Year
  Sex: Female

DRUGS (2)
  1. MONOPRIL [Suspect]
  2. CARDIAC MEDICATIONS [Concomitant]

REACTIONS (1)
  - DEATH [None]
